FAERS Safety Report 10323745 (Version 2)
Quarter: 2015Q1

REPORT INFORMATION
  Report Type: Other
  Country: US (occurrence: US)
  Receive Date: 20140720
  Receipt Date: 20150205
  Transmission Date: 20150720
  Serious: Yes (Hospitalization, Other)
  Sender: FDA-Public Use
  Company Number: US-GSKPPD-2014GSK024625

PATIENT
  Age: 54 Year
  Sex: Female

DRUGS (2)
  1. AVANDIA [Suspect]
     Active Substance: ROSIGLITAZONE MALEATE
     Indication: DIABETES MELLITUS
     Dosage: AVANDIA WAS NOT LISTED AMONG THE PATIENT S RECORDS REVIEWED.
     Route: 048
  2. ACCUPRIL [Concomitant]
     Active Substance: QUINAPRIL HYDROCHLORIDE

REACTIONS (2)
  - Cor pulmonale [Recovered/Resolved]
  - Cardiac failure congestive [Unknown]

NARRATIVE: CASE EVENT DATE: 20060906
